FAERS Safety Report 4606520-9 (Version None)
Quarter: 2005Q2

REPORT INFORMATION
  Report Type: 
  Country: None (occurrence: None)
  Receive Date: 20050223
  Receipt Date: 20041005
  Transmission Date: 20051028
  Serious: Yes (Other)
  Sender: FDA-Public Use
  Company Number: WAES 0410USA00789

PATIENT

DRUGS (2)
  1. ZOCOR [Suspect]
     Dosage: PO
     Route: 048
  2. AMIODARONE [Concomitant]

REACTIONS (1)
  - RHABDOMYOLYSIS [None]
